FAERS Safety Report 13105980 (Version 3)
Quarter: 2017Q1

REPORT INFORMATION
  Report Type: Report from Study
  Country: US (occurrence: US)
  Receive Date: 20170111
  Receipt Date: 20170302
  Transmission Date: 20170428
  Serious: Yes (Hospitalization, Other)
  Sender: FDA-Public Use
  Company Number: US-GILEAD-2017-0252501

PATIENT
  Age: 62 Year
  Sex: Male

DRUGS (3)
  1. ADEMPAS [Concomitant]
     Active Substance: RIOCIGUAT
  2. AMBRISENTAN [Suspect]
     Active Substance: AMBRISENTAN
     Indication: PRODUCT USED FOR UNKNOWN INDICATION
     Dosage: 5 MG, QD
     Route: 065
  3. REMODULIN [Concomitant]
     Active Substance: TREPROSTINIL

REACTIONS (8)
  - Pneumonia [Unknown]
  - Oxygen saturation decreased [Unknown]
  - Cerebrovascular accident [Recovering/Resolving]
  - Dialysis [Recovered/Resolved]
  - Cardiac arrest [Unknown]
  - Myocardial infarction [Recovering/Resolving]
  - Blood glucose decreased [Unknown]
  - Atrial fibrillation [Unknown]
